FAERS Safety Report 10168184 (Version 1)
Quarter: 2014Q2

REPORT INFORMATION
  Report Type: Spontaneous
  Country: US (occurrence: US)
  Receive Date: 20140512
  Receipt Date: 20140512
  Transmission Date: 20141212
  Serious: No
  Sender: FDA-Public Use
  Company Number: US-ASTRAZENECA-2013SE61478

PATIENT
  Sex: Female

DRUGS (2)
  1. FASLODEX [Suspect]
     Route: 030
  2. LMWH [Concomitant]

REACTIONS (4)
  - Contusion [Unknown]
  - Erythema [Unknown]
  - Injection site pain [Unknown]
  - Injection site swelling [Unknown]
